FAERS Safety Report 4589472-X (Version None)
Quarter: 2005Q1

REPORT INFORMATION
  Report Type: 
  Country: None (occurrence: None)
  Receive Date: 20050216
  Receipt Date: 20050209
  Transmission Date: 20050727
  Serious: Yes (Disabling, Other)
  Sender: FDA-Public Use
  Company Number: GBWYE410809FEB05

PATIENT
  Age: 25 Year
  Sex: Female

DRUGS (3)
  1. PREMARIN [Suspect]
     Indication: MENOPAUSE
     Dosage: 0.625UG FREQUENCY UNSPECIFIED ORAL
     Route: 048
     Dates: start: 20040401, end: 20041201
  2. LACIDIPINE (LACIDIPINE) [Concomitant]
  3. BENDROFLUAZIDE (BENDROFLUMETHIAZIDE) [Concomitant]

REACTIONS (2)
  - SLEEP DISORDER [None]
  - URTICARIA [None]
